FAERS Safety Report 5762381-6 (Version None)
Quarter: 2008Q2

REPORT INFORMATION
  Report Type: 
  Country: None (occurrence: None)
  Receive Date: 20080603
  Receipt Date: 20080519
  Transmission Date: 20081010
  Serious: Yes (Disabling)
  Sender: FDA-Public Use
  Company Number: 2008S1004685

PATIENT
  Age: 5 Year
  Sex: Female

DRUGS (1)
  1. MERCAPTAMINE BITARTRATE (MERCAPTAMINE BITARTRATE) [Suspect]
     Indication: CYSTINOSIS
     Dosage: 50 MG/KG; DAILY;

REACTIONS (7)
  - AFFECTIVE DISORDER [None]
  - DEMENTIA [None]
  - DEPRESSION [None]
  - DISTURBANCE IN ATTENTION [None]
  - EDUCATIONAL PROBLEM [None]
  - MENTAL IMPAIRMENT [None]
  - PALLOR [None]
